FAERS Safety Report 7059535-8 (Version None)
Quarter: 2010Q4

REPORT INFORMATION
  Report Type: 
  Country: None (occurrence: None)
  Receive Date: 20101025
  Receipt Date: 20101015
  Transmission Date: 20110411
  Serious: Yes (Other)
  Sender: FDA-Public Use
  Company Number: US-GENZYME-CERZ-1001626

PATIENT

DRUGS (3)
  1. CEREZYME [Suspect]
     Indication: GAUCHER'S DISEASE
     Dosage: 55 U/KG, Q2W
     Route: 042
  2. CEREZYME [Suspect]
     Dosage: 45 U/KG, Q2W
     Route: 042
  3. CEREZYME [Suspect]
     Dosage: 45 U/KG, 1X/W
     Route: 042

REACTIONS (7)
  - BONE INFARCTION [None]
  - BONE PAIN [None]
  - DEPRESSION [None]
  - EDUCATIONAL PROBLEM [None]
  - INFECTIOUS MONONUCLEOSIS [None]
  - THERAPY REGIMEN CHANGED [None]
  - VIRAL INFECTION [None]
